FAERS Safety Report 9697001 (Version 1)
Quarter: 2013Q4

REPORT INFORMATION
  Report Type: Spontaneous
  Country: US (occurrence: US)
  Receive Date: 20131119
  Receipt Date: 20131119
  Transmission Date: 20140711
  Serious: No
  Sender: FDA-Public Use
  Company Number: US-SA-2013SA102505

PATIENT
  Age: 48 Year
  Sex: Female

DRUGS (1)
  1. AUVI-Q [Suspect]
     Route: 065
     Dates: start: 20130815

REACTIONS (2)
  - Palpitations [Not Recovered/Not Resolved]
  - Nervousness [Not Recovered/Not Resolved]
